FAERS Safety Report 5127218-7 (Version None)
Quarter: 2006Q4

REPORT INFORMATION
  Report Type: 
  Country: None (occurrence: None)
  Receive Date: 20061010
  Receipt Date: 20060926
  Transmission Date: 20070319
  Serious: Yes (Hospitalization)
  Sender: FDA-Public Use
  Company Number: MEDI-0004837

PATIENT
  Age: 51 Year
  Sex: Male

DRUGS (4)
  1. ETHYOL [Suspect]
     Indication: RADIOTHERAPY
     Dosage: 500 MG, 5 IN 5 D, SUBCUTANEOUS
     Route: 058
     Dates: start: 20060718, end: 20060731
  2. CISPLATIN 9CISPLATIN) [Concomitant]
  3. RADIATION THERAPY [Concomitant]
  4. KYTRIL [Concomitant]

REACTIONS (7)
  - ANAPHYLACTIC REACTION [None]
  - BRADYCARDIA [None]
  - HYPOTENSION [None]
  - OESOPHAGEAL CANDIDIASIS [None]
  - ORAL CANDIDIASIS [None]
  - RENAL FAILURE ACUTE [None]
  - SEPSIS [None]
